FAERS Safety Report 5355820-6 (Version None)
Quarter: 2007Q2

REPORT INFORMATION
  Report Type: 
  Country: None (occurrence: None)
  Receive Date: 20070530
  Receipt Date: 20061009
  Transmission Date: 20071010
  Serious: Yes (Hospitalization, Other)
  Sender: FDA-Public Use
  Company Number: US200610001557

PATIENT
  Age: 52 Year
  Sex: Male
  Weight: 117.9 kg

DRUGS (6)
  1. ZYPREXA [Suspect]
     Dates: start: 19960101, end: 20040101
  2. RISPERIDONE [Concomitant]
  3. PERPHENAZINE [Concomitant]
  4. FLUOXETINE [Concomitant]
  5. LOPRESSOR [Concomitant]
  6. LOPINAVIR (LOPINAVIR) [Concomitant]

REACTIONS (5)
  - CEREBROVASCULAR ACCIDENT [None]
  - DIABETES MELLITUS NON-INSULIN-DEPENDENT [None]
  - DIZZINESS [None]
  - PANCREATITIS [None]
  - WEIGHT INCREASED [None]
